FAERS Safety Report 16460156 (Version 1)
Quarter: 2019Q2

REPORT INFORMATION
  Report Type: Report from Study
  Country: CA (occurrence: CA)
  Receive Date: 20190620
  Receipt Date: 20190620
  Transmission Date: 20190711
  Serious: Yes (Hospitalization, Other)
  Sender: FDA-Public Use
  Company Number: CA-BAUSCH-BL-2019-017784

PATIENT
  Age: 12 Year
  Sex: Female
  Weight: 51 kg

DRUGS (5)
  1. METRONIDAZOLE. [Suspect]
     Active Substance: METRONIDAZOLE
     Indication: PERINEAL ABSCESS
     Route: 065
  2. CIPROFLOXACIN. [Suspect]
     Active Substance: CIPROFLOXACIN
     Indication: PERINEAL ABSCESS
     Dosage: SALT NOT SPECIFIED
     Route: 065
  3. REMICADE [Suspect]
     Active Substance: INFLIXIMAB
     Dosage: POWDER FOR SOLUTION INTRAVENOUS
     Route: 042
  4. REMICADE [Suspect]
     Active Substance: INFLIXIMAB
     Indication: CROHN^S DISEASE
     Dosage: POWDER FOR SOLUTION INTRAVENOUS
     Route: 042
  5. REMICADE [Suspect]
     Active Substance: INFLIXIMAB
     Dosage: POWDER FOR SOLUTION INTRAVENOUS
     Route: 042

REACTIONS (6)
  - Influenza [Recovered/Resolved]
  - Anal abscess [Recovered/Resolved]
  - Haematochezia [Recovered/Resolved]
  - Perineal abscess [Recovered/Resolved]
  - Faeces soft [Recovered/Resolved]
  - Mucous stools [Recovered/Resolved]
